FAERS Safety Report 4901746-9 (Version None)
Quarter: 2006Q1

REPORT INFORMATION
  Report Type: 
  Country: None (occurrence: None)
  Receive Date: 20060206
  Receipt Date: 20051007
  Transmission Date: 20060701
  Serious: Yes (Death)
  Sender: FDA-Public Use
  Company Number: US-AMGEN-KDL153529

PATIENT
  Sex: Male
  Weight: 77.2 kg

DRUGS (7)
  1. PROCRIT [Suspect]
     Indication: RENAL FAILURE CHRONIC
     Dates: start: 20040101
  2. UNSPECIFIED BETA BLOCKER [Concomitant]
  3. EFFEXOR [Concomitant]
  4. PROVIGIL [Concomitant]
  5. ATIVAN [Concomitant]
  6. CARDIAC MEDICATION NOS [Concomitant]
  7. PREDNISONE [Concomitant]

REACTIONS (2)
  - DEATH [None]
  - INFLUENZA LIKE ILLNESS [None]
